FAERS Safety Report 12518624 (Version 2)
Quarter: 2016Q3

REPORT INFORMATION
  Report Type: Report from Study
  Country: DE (occurrence: DE)
  Receive Date: 20160630
  Receipt Date: 20160913
  Transmission Date: 20161109
  Serious: Yes (Hospitalization)
  Sender: FDA-Public Use
  Company Number: DE-BIOGEN-2016BI00258833

PATIENT
  Age: 62 Year
  Sex: Female

DRUGS (5)
  1. CARBAMAZEPIN [Concomitant]
     Active Substance: CARBAMAZEPINE
     Indication: TRIGEMINAL NEURALGIA
     Route: 048
     Dates: start: 2004
  2. LYRICA [Concomitant]
     Active Substance: PREGABALIN
     Indication: TRIGEMINAL NEURALGIA
     Route: 048
     Dates: start: 2004
  3. TECFIDERA [Suspect]
     Active Substance: DIMETHYL FUMARATE
     Indication: MULTIPLE SCLEROSIS
     Dosage: MAINTENANCE DOSE
     Route: 048
     Dates: start: 20160113, end: 20160523
  4. TECFIDERA [Suspect]
     Active Substance: DIMETHYL FUMARATE
     Route: 065
     Dates: start: 20160702
  5. BACLOFEN. [Concomitant]
     Active Substance: BACLOFEN
     Indication: TRIGEMINAL NEURALGIA
     Route: 048
     Dates: start: 2004

REACTIONS (3)
  - Upper limb fracture [Recovered/Resolved]
  - Fall [Recovered/Resolved]
  - Thoracic vertebral fracture [Recovered/Resolved]

NARRATIVE: CASE EVENT DATE: 20160521
